FAERS Safety Report 5482485-5 (Version None)
Quarter: 2007Q4

REPORT INFORMATION
  Report Type: 
  Country: None (occurrence: None)
  Receive Date: 20071011
  Receipt Date: 20071003
  Transmission Date: 20080405
  Serious: Yes (Other)
  Sender: FDA-Public Use
  Company Number: PHEH2007US13187

PATIENT
  Age: 36 Year
  Sex: Female

DRUGS (1)
  1. ZELNORM [Suspect]
     Indication: IMPAIRED GASTRIC EMPTYING

REACTIONS (5)
  - DEHYDRATION [None]
  - DISEASE RECURRENCE [None]
  - IMPAIRED GASTRIC EMPTYING [None]
  - LOSS OF CONSCIOUSNESS [None]
  - MALNUTRITION [None]
